FAERS Safety Report 14855718 (Version 2)
Quarter: 2019Q2

REPORT INFORMATION
  Report Type: Spontaneous
  Country: US (occurrence: US)
  Receive Date: 20180507
  Receipt Date: 20190509
  Transmission Date: 20190711
  Serious: No
  Sender: FDA-Public Use
  Company Number: US-ROCHE-1921790

PATIENT
  Age: 72 Year
  Sex: Female
  Weight: 49.03 kg

DRUGS (4)
  1. ESBRIET [Suspect]
     Active Substance: PIRFENIDONE
     Route: 048
     Dates: start: 20180701
  2. ESBRIET [Suspect]
     Active Substance: PIRFENIDONE
     Indication: IDIOPATHIC PULMONARY FIBROSIS
     Route: 048
     Dates: start: 20161220, end: 20170414
  3. ESBRIET [Suspect]
     Active Substance: PIRFENIDONE
     Route: 048
     Dates: start: 20170415
  4. ESBRIET [Suspect]
     Active Substance: PIRFENIDONE
     Dosage: NOT STOPPED DOSE DECREASED
     Route: 048
     Dates: start: 201608

REACTIONS (4)
  - Dizziness [Unknown]
  - Nausea [Unknown]
  - Diarrhoea [Unknown]
  - Gastrointestinal disorder [Unknown]

NARRATIVE: CASE EVENT DATE: 20170414
